FAERS Safety Report 12456033 (Version 1)
Quarter: 2016Q2

REPORT INFORMATION
  Report Type: Spontaneous
  Country: CA (occurrence: CA)
  Receive Date: 20160610
  Receipt Date: 20160610
  Transmission Date: 20160815
  Serious: Yes (Other)
  Sender: FDA-Public Use
  Company Number: CA-MYLANLABS-2016M1024178

PATIENT

DRUGS (1)
  1. TOPOTECAN [Suspect]
     Active Substance: TOPOTECAN\TOPOTECAN HYDROCHLORIDE
     Indication: CONGENITAL RETINOBLASTOMA
     Dosage: EACH INJECTION WAS 2.0 MG (0.13 MG/KG OR OR 3.75 MG/M2)
     Route: 031

REACTIONS (3)
  - Type IV hypersensitivity reaction [Recovered/Resolved]
  - Conjunctival oedema [Recovered/Resolved]
  - Conjunctival haemorrhage [Recovered/Resolved]
